FAERS Safety Report 12702381 (Version 1)
Quarter: 2016Q3

REPORT INFORMATION
  Report Type: Spontaneous
  Country: US (occurrence: US)
  Receive Date: 20160831
  Receipt Date: 20160831
  Transmission Date: 20161109
  Serious: No
  Sender: FDA-Public Use
  Company Number: US-009507513-1608USA010305

PATIENT
  Age: 19 Year
  Sex: Female
  Weight: 63.49 kg

DRUGS (1)
  1. NUVARING [Suspect]
     Active Substance: ETHINYL ESTRADIOL\ETONOGESTREL
     Indication: CONTRACEPTION
     Dosage: UNK
     Route: 067
     Dates: start: 2013

REACTIONS (4)
  - Increased appetite [Unknown]
  - Poor quality sleep [Unknown]
  - Incorrect drug administration duration [Unknown]
  - Headache [Unknown]

NARRATIVE: CASE EVENT DATE: 20160731
